FAERS Safety Report 23121769 (Version 1)
Quarter: 2023Q4

REPORT INFORMATION
  Report Type: Spontaneous
  Country: US (occurrence: US)
  Receive Date: 20231030
  Receipt Date: 20231030
  Transmission Date: 20240110
  Serious: No
  Sender: FDA-Public Use
  Company Number: US-ABBVIE-5471787

PATIENT
  Age: 45 Year
  Sex: Female

DRUGS (1)
  1. LILETTA [Suspect]
     Active Substance: LEVONORGESTREL
     Indication: Product used for unknown indication
     Dosage: 52MG
     Route: 015
     Dates: start: 20231018

REACTIONS (2)
  - Procedure aborted [Unknown]
  - Procedural pain [Unknown]

NARRATIVE: CASE EVENT DATE: 20231018
